FAERS Safety Report 4365531-1 (Version None)
Quarter: 2004Q2

REPORT INFORMATION
  Report Type: 
  Country: None (occurrence: None)
  Receive Date: 20040526
  Receipt Date: 20040422
  Transmission Date: 20050107
  Serious: Yes (Other)
  Sender: FDA-Public Use
  Company Number: CN-GLAXOSMITHKLINE-B0331173A

PATIENT
  Age: 38 Year
  Sex: Male
  Weight: 72.5 kg

DRUGS (4)
  1. HEPTODIN [Suspect]
     Dosage: 100MG PER DAY
     Route: 048
     Dates: start: 20021025, end: 20040328
  2. BIFENDATE [Concomitant]
  3. ANETHOL TRITHIONE [Concomitant]
  4. TIOPRONIN [Concomitant]

REACTIONS (5)
  - ABDOMINAL PAIN UPPER [None]
  - ALANINE AMINOTRANSFERASE INCREASED [None]
  - FATIGUE [None]
  - HBV DNA INCREASED [None]
  - HEPATITIS B VIRUS [None]
